FAERS Safety Report 5690834-8 (Version None)
Quarter: 2008Q2

REPORT INFORMATION
  Report Type: 
  Country: None (occurrence: None)
  Receive Date: 20080401
  Receipt Date: 20080328
  Transmission Date: 20081010
  Serious: Yes (Hospitalization)
  Sender: FDA-Public Use
  Company Number: B0514668A

PATIENT
  Age: 76 Year
  Sex: Male

DRUGS (6)
  1. VALTREX [Suspect]
     Indication: HERPES ZOSTER
     Dosage: 1000MG PER DAY
     Dates: start: 20080118, end: 20080119
  2. DISTRANEURIN [Suspect]
     Indication: SLEEP DISORDER
     Dates: start: 20060101
  3. STILNOX [Concomitant]
     Indication: SLEEP DISORDER
  4. MARCUMAR [Concomitant]
     Indication: ATRIAL FIBRILLATION
  5. TRIATEC [Concomitant]
     Indication: SECONDARY HYPERTENSION
  6. CARVEDILOL [Concomitant]
     Indication: SECONDARY HYPERTENSION

REACTIONS (13)
  - AMNESIA [None]
  - ANOREXIA [None]
  - APPARENT DEATH [None]
  - CIRCULATORY COLLAPSE [None]
  - CONFUSIONAL STATE [None]
  - DIZZINESS [None]
  - FALL [None]
  - INCORRECT DOSE ADMINISTERED [None]
  - NAUSEA [None]
  - PALPITATIONS [None]
  - PSYCHOTIC DISORDER [None]
  - SOMNOLENCE [None]
  - VISUAL DISTURBANCE [None]
